FAERS Safety Report 5386587-3 (Version None)
Quarter: 2007Q3

REPORT INFORMATION
  Report Type: 
  Country: None (occurrence: None)
  Receive Date: 20070713
  Receipt Date: 20070710
  Transmission Date: 20080115
  Serious: Yes (Other)
  Sender: FDA-Public Use
  Company Number: B0478724A

PATIENT
  Age: 26 Year
  Sex: Male

DRUGS (1)
  1. LEUKERAN [Suspect]
     Indication: DRUG USE FOR UNKNOWN INDICATION
     Route: 048
     Dates: start: 20070101

REACTIONS (2)
  - HYPERSENSITIVITY [None]
  - RENAL DISORDER [None]
